FAERS Safety Report 4783761-1 (Version None)
Quarter: 2005Q3

REPORT INFORMATION
  Report Type: 
  Country: None (occurrence: None)
  Receive Date: 20050927
  Receipt Date: 20050609
  Transmission Date: 20060218
  Serious: No
  Sender: FDA-Public Use
  Company Number: USA0506100098

PATIENT
  Age: 4 Year
  Sex: Male

DRUGS (1)
  1. STRATTERA [Suspect]
     Indication: ATTENTION DEFICIT/HYPERACTIVITY DISORDER
     Dosage: 25 MG IN THE MORNING
     Dates: start: 20050422

REACTIONS (7)
  - CONVERSION DISORDER [None]
  - CRYING [None]
  - DRUG EFFECT DECREASED [None]
  - HYPERSOMNIA [None]
  - SCREAMING [None]
  - SOMNOLENCE [None]
  - UNEVALUABLE EVENT [None]
